FAERS Safety Report 13578209 (Version 1)
Quarter: 2017Q2

REPORT INFORMATION
  Report Type: Spontaneous
  Country: US (occurrence: US)
  Receive Date: 20170524
  Receipt Date: 20170524
  Transmission Date: 20170830
  Serious: No
  Sender: FDA-Public Use
  Company Number: US-FRESENIUS KABI-FK201704459

PATIENT
  Age: 18 Year

DRUGS (1)
  1. FLUMAZENIL (MANUFACTURER UNKNOWN) [Suspect]
     Active Substance: FLUMAZENIL
     Indication: INTRACRANIAL MASS
     Route: 065

REACTIONS (1)
  - Seizure [Unknown]
